FAERS Safety Report 10157867 (Version 1)
Quarter: 2014Q2

REPORT INFORMATION
  Report Type: Spontaneous
  Country: US (occurrence: US)
  Receive Date: 20140507
  Receipt Date: 20140507
  Transmission Date: 20141212
  Serious: Yes (Other)
  Sender: FDA-Public Use
  Company Number: US-TEVA-479858USA

PATIENT
  Age: 26 Year
  Sex: Female
  Weight: 45.4 kg

DRUGS (3)
  1. PARAGARD 380A [Suspect]
     Indication: CONTRACEPTION
     Route: 015
     Dates: start: 201403, end: 20140429
  2. PRENATAL VITAMIN [Concomitant]
     Indication: POSTPARTUM STATE
  3. ALBUTEROL [Concomitant]
     Indication: ASTHMA

REACTIONS (3)
  - Device dislocation [Recovered/Resolved]
  - Vaginal haemorrhage [Recovered/Resolved]
  - Abdominal pain lower [Not Recovered/Not Resolved]
